FAERS Safety Report 8615204-1 (Version None)
Quarter: 2012Q3

REPORT INFORMATION
  Report Type: 
  Country: None (occurrence: None)
  Receive Date: 20120823
  Receipt Date: 20120814
  Transmission Date: 20120928
  Serious: Yes (Hospitalization)
  Sender: FDA-Public Use
  Company Number: US-ABBOTT-12P-163-0968996-00

PATIENT
  Sex: Male
  Weight: 143.01 kg

DRUGS (5)
  1. HUMIRA [Suspect]
     Indication: COLITIS ULCERATIVE
     Route: 058
     Dates: start: 20120401, end: 20120401
  2. LIALDA [Concomitant]
     Indication: PRODUCT USED FOR UNKNOWN INDICATION
  3. AZATHIOPRINE SODIUM [Concomitant]
     Indication: PRODUCT USED FOR UNKNOWN INDICATION
  4. HUMIRA [Suspect]
     Route: 058
     Dates: start: 20120401, end: 20120401
  5. HUMIRA [Suspect]
     Route: 058
     Dates: start: 20120501, end: 20120801

REACTIONS (2)
  - OFF LABEL USE [None]
  - ARTHRITIS ENTEROPATHIC [None]
